FAERS Safety Report 10598190 (Version 3)
Quarter: 2021Q3

REPORT INFORMATION
  Report Type: Spontaneous
  Country: US (occurrence: US)
  Receive Date: 20141121
  Receipt Date: 20210712
  Transmission Date: 20211014
  Serious: Yes (Death, Life-Threatening, Hospitalization, Other)
  Sender: FDA-Public Use
  Company Number: US-SA-2014SA156432

PATIENT
  Age: 43 Year
  Sex: Female
  Weight: 63 kg

DRUGS (4)
  1. ALPRAZOLAM. [Suspect]
     Active Substance: ALPRAZOLAM
     Dosage: 15 MG,1X
     Route: 048
  2. ZOLPIDEM TARTRATE. [Suspect]
     Active Substance: ZOLPIDEM TARTRATE
     Dosage: 200 MG,1X
     Route: 048
  3. TRAMADOL HYDROCHLORIDE. [Suspect]
     Active Substance: TRAMADOL HYDROCHLORIDE
     Dosage: 1.5 G,1X
     Route: 048
  4. PROPRANOLOL HYDROCHLORIDE. [Suspect]
     Active Substance: PROPRANOLOL HYDROCHLORIDE
     Indication: PRODUCT USED FOR UNKNOWN INDICATION
     Dosage: 12 G,1X
     Route: 048

REACTIONS (13)
  - Ventricular hypokinesia [Fatal]
  - Blood creatinine increased [Fatal]
  - Hypotension [Fatal]
  - Ejection fraction decreased [Fatal]
  - Pulse absent [Fatal]
  - Heart rate increased [Fatal]
  - Blood glucose increased [Fatal]
  - Agonal respiration [Fatal]
  - Cardiogenic shock [Fatal]
  - Haemodynamic instability [Fatal]
  - Cardiac arrest [Fatal]
  - Hypoventilation [Fatal]
  - Intentional overdose [Fatal]
